FAERS Safety Report 16975974 (Version 1)
Quarter: 2019Q4

REPORT INFORMATION
  Report Type: Report from Study
  Country: CA (occurrence: CA)
  Receive Date: 20191030
  Receipt Date: 20191030
  Transmission Date: 20200122
  Serious: Yes (Death)
  Sender: FDA-Public Use
  Company Number: CA-ASTRAZENECA-2019SF52411

PATIENT
  Sex: Male

DRUGS (2)
  1. GIOTRIF (AFTINIB) [Concomitant]
     Dates: start: 20180515
  2. TAGRISSO [Suspect]
     Active Substance: OSIMERTINIB
     Indication: NON-SMALL CELL LUNG CANCER
     Route: 048
     Dates: start: 20190222

REACTIONS (1)
  - Death [Fatal]
